FAERS Safety Report 8181409 (Version 3)
Quarter: 2013Q2

REPORT INFORMATION
  Report Type: Report from Study
  Country: FR (occurrence: FR)
  Receive Date: 20111014
  Receipt Date: 20130410
  Transmission Date: 20140414
  Serious: Yes (Other)
  Sender: FDA-Public Use
  Company Number: FR-ROCHE-1001820

PATIENT
  Age: 70 Year
  Sex: Male

DRUGS (8)
  1. RITUXIMAB [Suspect]
     Indication: CHRONIC LYMPHOCYTIC LEUKAEMIA
     Route: 041
     Dates: start: 20110321, end: 20110615
  2. FLUDARA [Suspect]
     Indication: CHRONIC LYMPHOCYTIC LEUKAEMIA
     Route: 002
     Dates: start: 20110615, end: 20110617
  3. ENDOXAN [Suspect]
     Indication: CHRONIC LYMPHOCYTIC LEUKAEMIA
     Route: 002
     Dates: start: 20110615, end: 20110617
  4. ZELITREX [Concomitant]
     Route: 002
     Dates: start: 20110321
  5. METHOTREXATE [Concomitant]
     Route: 065
     Dates: start: 20110321
  6. BACTRIM [Concomitant]
     Dosage: 400 MG DCI1 AND 80 MG DCI2
     Route: 002
     Dates: start: 20110321
  7. GAVISCON (FRANCE) [Concomitant]
     Route: 065
     Dates: start: 1995
  8. ZOPICLONE [Concomitant]
     Route: 065
     Dates: start: 1980

REACTIONS (1)
  - Basal cell carcinoma [Recovered/Resolved]
